FAERS Safety Report 19674470 (Version 1)
Quarter: 2021Q3

REPORT INFORMATION
  Report Type: Spontaneous
  Country: US (occurrence: US)
  Receive Date: 20210809
  Receipt Date: 20210809
  Transmission Date: 20211014
  Serious: No
  Sender: FDA-Public Use
  Company Number: US-ALKEM LABORATORIES LIMITED-US-ALKEM-2020-05124

PATIENT
  Sex: Female

DRUGS (1)
  1. ITRACONAZOLE 200 CAPSULE [Suspect]
     Active Substance: ITRACONAZOLE
     Indication: FUNGAL INFECTION
     Dosage: UNK
     Route: 065

REACTIONS (1)
  - Drug ineffective [Unknown]
